FAERS Safety Report 13697373 (Version 3)
Quarter: 2017Q3

REPORT INFORMATION
  Report Type: Spontaneous
  Country: DE (occurrence: DE)
  Receive Date: 20170628
  Receipt Date: 20170727
  Transmission Date: 20171127
  Serious: Yes (Hospitalization)
  Sender: FDA-Public Use
  Company Number: US-ASTRAZENECA-2017SE66201

PATIENT
  Age: 234 Day
  Sex: Male
  Weight: 5.2 kg

DRUGS (6)
  1. SYNAGIS [Suspect]
     Active Substance: PALIVIZUMAB
     Indication: BRONCHOPULMONARY DYSPLASIA
     Route: 030
     Dates: start: 20161026, end: 20161223
  2. SYNAGIS [Suspect]
     Active Substance: PALIVIZUMAB
     Indication: LOW BIRTH WEIGHT BABY
     Route: 030
     Dates: start: 20161026, end: 20161223
  3. SYNAGIS [Suspect]
     Active Substance: PALIVIZUMAB
     Indication: ANTIVIRAL PROPHYLAXIS
     Route: 030
     Dates: start: 20161026, end: 20161223
  4. FERRO SANOL [Concomitant]
     Active Substance: FERROUS GLYCINE SULFATE
     Indication: PRODUCT USED FOR UNKNOWN INDICATION
  5. DEVIT [Concomitant]
     Indication: PRODUCT USED FOR UNKNOWN INDICATION
  6. SYNAGIS [Suspect]
     Active Substance: PALIVIZUMAB
     Indication: PREMATURE BABY
     Route: 030
     Dates: start: 20161026, end: 20161223

REACTIONS (15)
  - White blood cell count increased [Unknown]
  - Neutrophil count decreased [Unknown]
  - Respiratory failure [Recovered/Resolved]
  - Lung infiltration [Recovered/Resolved]
  - Haemoglobin decreased [Unknown]
  - Haematocrit decreased [Unknown]
  - Monocyte count increased [Recovered/Resolved]
  - C-reactive protein increased [Unknown]
  - Respiratory syncytial virus infection [Recovered/Resolved]
  - Mean cell volume decreased [Unknown]
  - Mean cell haemoglobin decreased [Unknown]
  - Blood potassium increased [Unknown]
  - Platelet count increased [Unknown]
  - Blood creatinine decreased [Unknown]
  - Lymphocyte count increased [Unknown]

NARRATIVE: CASE EVENT DATE: 20170115
